FAERS Safety Report 15695293 (Version 1)
Quarter: 2018Q4

REPORT INFORMATION
  Report Type: Spontaneous
  Country: FR (occurrence: FR)
  Receive Date: 20181206
  Receipt Date: 20181206
  Transmission Date: 20190205
  Serious: Yes (Hospitalization)
  Sender: FDA-Public Use
  Company Number: FR-TEVA-2018-FR-982983

PATIENT
  Age: 90 Year
  Sex: Male
  Weight: 69 kg

DRUGS (4)
  1. AMLODIPINE BIOGARAN 5 MG, G?LULE [Concomitant]
     Indication: HYPERTENSION
     Dosage: 5 MILLIGRAM DAILY;
     Route: 048
  2. AVODART [Concomitant]
     Active Substance: DUTASTERIDE
     Indication: BENIGN PROSTATIC HYPERPLASIA
     Dosage: .25 MILLIGRAM DAILY;
     Route: 048
  3. CLOPIDOGREL (CHLORHYDRATE DE) [Suspect]
     Active Substance: CLOPIDOGREL HYDROCHLORIDE
     Indication: CAROTID ENDARTERECTOMY
     Dosage: 75 MILLIGRAM DAILY;
     Route: 048
  4. TAMSULOSINE BIOGARAN L.P. 0,4 MG, G?LULE ? LIB?RATION PROLONG?E [Concomitant]
     Indication: BENIGN PROSTATIC HYPERPLASIA
     Dosage: .4 MILLIGRAM DAILY;
     Route: 048

REACTIONS (1)
  - Periorbital haematoma [Recovering/Resolving]

NARRATIVE: CASE EVENT DATE: 20180801
